FAERS Safety Report 13964511 (Version 1)
Quarter: 2017Q3

REPORT INFORMATION
  Report Type: Spontaneous
  Country: GB (occurrence: GB)
  Receive Date: 20170913
  Receipt Date: 20170913
  Transmission Date: 20171128
  Serious: Yes (Other)
  Sender: FDA-Public Use
  Company Number: GB-TEVA-804183ACC

PATIENT
  Age: 84 Year
  Sex: Female

DRUGS (1)
  1. CITALOPRAM [Suspect]
     Active Substance: CITALOPRAM HYDROBROMIDE
     Indication: DEPRESSION
     Dosage: DOSE: 10MG INCREASED TO 20MGSTRENGTH: CITALOPRAM 10MG AND 20MG TABLETS

REACTIONS (1)
  - Fall [Unknown]
